FAERS Safety Report 7595964-1 (Version None)
Quarter: 2011Q3

REPORT INFORMATION
  Report Type: 
  Country: None (occurrence: None)
  Receive Date: 20110707
  Receipt Date: 20110627
  Transmission Date: 20111222
  Serious: Yes (Other)
  Sender: FDA-Public Use
  Company Number: PHHY2010US42567

PATIENT
  Sex: Male
  Weight: 74.83 kg

DRUGS (2)
  1. EXJADE [Suspect]
     Indication: NEOPLASM
     Dosage: 1500 MG, DAILY
     Route: 048
     Dates: start: 20060711
  2. EXJADE [Suspect]
     Indication: IRON OVERLOAD
     Route: 048

REACTIONS (7)
  - DIVERTICULITIS [None]
  - ABDOMINAL PAIN UPPER [None]
  - VOMITING [None]
  - SERUM FERRITIN INCREASED [None]
  - FALL [None]
  - NAUSEA [None]
  - SKELETAL INJURY [None]
